FAERS Safety Report 18285432 (Version 1)
Quarter: 2020Q3

REPORT INFORMATION
  Report Type: Spontaneous
  Country: US (occurrence: US)
  Receive Date: 20200918
  Receipt Date: 20200918
  Transmission Date: 20201103
  Serious: Yes (Hospitalization)
  Sender: FDA-Public Use
  Company Number: US-FRESENIUS MEDICAL CARE RENAL THERAPIES GROUP-FMC-2009-001083

PATIENT
  Sex: Male

DRUGS (15)
  1. AMLODIPINE [Concomitant]
     Active Substance: AMLODIPINE BESYLATE
  2. BRILINTA [Concomitant]
     Active Substance: TICAGRELOR
  3. CARVEDILOL. [Concomitant]
     Active Substance: CARVEDILOL
  4. MARIJUANA [Concomitant]
     Active Substance: CANNABIS SATIVA SUBSP. INDICA TOP
  5. CALCITRIOL. [Concomitant]
     Active Substance: CALCITRIOL
  6. DOXAZOSIN [Concomitant]
     Active Substance: DOXAZOSIN MESYLATE
  7. ATORVASTATIN [Concomitant]
     Active Substance: ATORVASTATIN
  8. INSULIN [Concomitant]
     Active Substance: INSULIN NOS
  9. LASIX [Concomitant]
     Active Substance: FUROSEMIDE
  10. XANAX [Concomitant]
     Active Substance: ALPRAZOLAM
  11. DELFLEX [Suspect]
     Active Substance: CALCIUM CHLORIDE\DEXTROSE\MAGNESIUM CHLORIDE\SODIUM CHLORIDE\SODIUM LACTATE
     Indication: END STAGE RENAL DISEASE
     Dosage: EXCHANGES 4; FILL VOLUME 2000 ML, DWELL TIME 1.0 HOUR 45 MINUTES, DRAIN TIME 20 MINUTES, TOTAL VOLUM
     Route: 033
  12. ASPIRIN. [Concomitant]
     Active Substance: ASPIRIN
  13. IMDUR [Concomitant]
     Active Substance: ISOSORBIDE MONONITRATE
  14. TUMS [Concomitant]
     Active Substance: CALCIUM CARBONATE
  15. CLONIDINE. [Concomitant]
     Active Substance: CLONIDINE

REACTIONS (2)
  - Hypertension [Unknown]
  - Angina pectoris [Unknown]
